FAERS Safety Report 6355905-1 (Version None)
Quarter: 2009Q3

REPORT INFORMATION
  Report Type: 
  Country: None (occurrence: None)
  Receive Date: 20090911
  Receipt Date: 20090911
  Transmission Date: 20100115
  Serious: Yes (Other)
  Sender: FDA-Public Use
  Company Number: None

PATIENT
  Age: 85 Year
  Sex: Female
  Weight: 63.05 kg

DRUGS (1)
  1. TRILIPIX [Suspect]
     Dosage: 140 MG Q.D.
     Dates: start: 20090603, end: 20090822

REACTIONS (1)
  - UNEVALUABLE EVENT [None]
